FAERS Safety Report 7834682-9 (Version None)
Quarter: 2011Q4

REPORT INFORMATION
  Report Type: 
  Country: None (occurrence: None)
  Receive Date: 20111024
  Receipt Date: 20111018
  Transmission Date: 20120403
  Serious: Yes (Life-Threatening)
  Sender: FDA-Public Use
  Company Number: FR-ASTRAZENECA-2011SE62820

PATIENT
  Sex: Male
  Weight: 75 kg

DRUGS (10)
  1. LEVOTHYROXINE SODIUM [Concomitant]
     Indication: THYROIDECTOMY
     Route: 048
  2. VANDETANIB [Suspect]
     Indication: THYROID CANCER
     Route: 048
     Dates: start: 20111003, end: 20111018
  3. MORPHINE SULFATE [Concomitant]
     Indication: PAIN
     Route: 048
     Dates: start: 20111007
  4. POTASSIUM [Concomitant]
     Indication: HYPOKALAEMIA
     Route: 048
     Dates: start: 20111011
  5. IRBESARTAN [Concomitant]
     Indication: HYPERTENSION
     Route: 048
  6. UMULINE [Concomitant]
     Indication: DIABETES MELLITUS
     Route: 058
     Dates: start: 20111011
  7. SPIRONOLACTONE [Concomitant]
     Indication: HYPERTENSION
     Route: 048
     Dates: start: 20111009
  8. SPIRONOLACTONE [Concomitant]
     Indication: HYPOKALAEMIA
     Route: 048
     Dates: start: 20111009
  9. IRBESARTAN [Concomitant]
     Indication: HYPOKALAEMIA
     Route: 048
  10. MORPHINE SULFATE [Concomitant]
     Indication: PAIN
     Route: 048
     Dates: start: 20111007

REACTIONS (1)
  - DYSPNOEA [None]
